FAERS Safety Report 7201008-3 (Version None)
Quarter: 2010Q4

REPORT INFORMATION
  Report Type: 
  Country: None (occurrence: None)
  Receive Date: 20101228
  Receipt Date: 20101025
  Transmission Date: 20110411
  Serious: No
  Sender: FDA-Public Use
  Company Number: US-MYLANLABS-2010S1019619

PATIENT
  Sex: Male

DRUGS (12)
  1. MIRTAZAPINE [Suspect]
     Indication: INSOMNIA
     Route: 048
  2. MIRTAZAPINE [Suspect]
     Route: 048
     Dates: end: 20100901
  3. TRAZODONE HCL [Suspect]
     Indication: INSOMNIA
     Route: 048
     Dates: start: 20100101, end: 20100101
  4. TRAZODONE HCL [Suspect]
     Route: 048
     Dates: start: 20100101, end: 20100101
  5. TRAZODONE HCL [Suspect]
     Route: 048
     Dates: start: 20100101
  6. RITALIN [Concomitant]
     Indication: ATTENTION DEFICIT/HYPERACTIVITY DISORDER
     Route: 048
  7. XANAX [Concomitant]
     Indication: ANXIETY
     Route: 048
  8. FLUTICASONE PROPIONATE [Concomitant]
     Indication: HYPERSENSITIVITY
     Route: 048
  9. METHYLPHENIDATE [Concomitant]
     Indication: ATTENTION DEFICIT/HYPERACTIVITY DISORDER
     Route: 048
  10. ALPRAZOLAM [Concomitant]
     Indication: ANXIETY
     Route: 048
  11. M.V.I. [Concomitant]
     Indication: VITAMIN SUPPLEMENTATION
     Route: 048
  12. LYSINE [Concomitant]
     Indication: VITAMIN SUPPLEMENTATION
     Route: 048

REACTIONS (12)
  - ACNE [None]
  - CHEST DISCOMFORT [None]
  - DRUG INTERACTION [None]
  - DRY EYE [None]
  - DRY SKIN [None]
  - FAECES DISCOLOURED [None]
  - LIBIDO DISORDER [None]
  - OCULAR HYPERAEMIA [None]
  - OEDEMA PERIPHERAL [None]
  - ORAL HERPES [None]
  - RESTLESS LEGS SYNDROME [None]
  - TREMOR [None]
